FAERS Safety Report 15388260 (Version 1)
Quarter: 2018Q3

REPORT INFORMATION
  Report Type: Spontaneous
  Country: US (occurrence: US)
  Receive Date: 20180915
  Receipt Date: 20180915
  Transmission Date: 20181010
  Serious: No
  Sender: FDA-Public Use
  Company Number: US-ALVOGEN-2017-ALVOGEN-093837

PATIENT
  Sex: Female
  Weight: 97.52 kg

DRUGS (1)
  1. CLINDAMYCIN. [Suspect]
     Active Substance: CLINDAMYCIN
     Indication: BRONCHITIS

REACTIONS (2)
  - Hypersensitivity [Unknown]
  - Drug intolerance [Unknown]
